FAERS Safety Report 24176182 (Version 1)
Quarter: 2024Q3

REPORT INFORMATION
  Report Type: Report from Study
  Country: US (occurrence: None)
  Receive Date: 20240806
  Receipt Date: 20240806
  Transmission Date: 20241017
  Serious: Yes (Other)
  Sender: ASTRAZENECA
  Company Number: 2022A113744

PATIENT
  Sex: Female

DRUGS (1)
  1. LYNPARZA [Suspect]
     Active Substance: OLAPARIB
     Indication: Ovarian cancer
     Route: 048

REACTIONS (6)
  - Aphasia [Unknown]
  - Tremor [Unknown]
  - Dizziness [Unknown]
  - Joint swelling [Unknown]
  - Peripheral swelling [Unknown]
  - Pain in extremity [Unknown]
